FAERS Safety Report 9370120 (Version 1)
Quarter: 2013Q2

REPORT INFORMATION
  Report Type: Spontaneous
  Country: US (occurrence: None)
  Receive Date: 20130621
  Receipt Date: 20130621
  Transmission Date: 20140414
  Serious: Yes (Hospitalization)
  Sender: FDA-Public Use
  Company Number: 2013STPI000227

PATIENT
  Age: 73 Year
  Sex: Female
  Weight: 83.9 kg

DRUGS (11)
  1. MATULANE (PROCARBAZINE HYDROCHLORIDE) CAPSULE, 50MG [Suspect]
     Indication: BRAIN NEOPLASM MALIGNANT
     Route: 048
     Dates: end: 201305
  2. PRILOSEC [Concomitant]
  3. ALBUTEROL SULFATE (SALBUTAMOL SULFATE) [Concomitant]
  4. TYLENOL PM EXTRA STRENGTH (DIPHENHYDRAMINE HYDROCHLORIDE, PARACETAMOL) [Concomitant]
  5. FUROSEMIDE (FUROSEMIDE) [Concomitant]
  6. ZOFRAN (ONDANSETRON HYDROCHLORIDE) [Concomitant]
  7. ALBUTEROL (SALBUTAMOL SULFATE) [Concomitant]
  8. WARFARIN SODIUM (WARFARIN SODIUM) [Concomitant]
  9. KEPPRA (LEVETIRACETAM) [Concomitant]
  10. VITAMIN D (COLECALCIFEROL) [Concomitant]
  11. PERCOCET-5 (ACETYLSALICYLIC ACID, OXYCODONE HYDROCHLORIDE, OXYCODONE TEREPHTHALATE) [Concomitant]

REACTIONS (3)
  - Acute respiratory failure [None]
  - Bronchitis [None]
  - Pneumonia [None]
